FAERS Safety Report 24069235 (Version 1)
Quarter: 2024Q3

REPORT INFORMATION
  Report Type: Report from Study
  Country: RO (occurrence: RO)
  Receive Date: 20240710
  Receipt Date: 20240710
  Transmission Date: 20241017
  Serious: No
  Sender: ROCHE
  Company Number: RO-ROCHE-3555834

PATIENT
  Age: 40 Year
  Sex: Female
  Weight: 67.0 kg

DRUGS (1)
  1. PHESGO [Suspect]
     Active Substance: HYALURONIDASE-ZZXF\PERTUZUMAB\TRASTUZUMAB
     Indication: Breast neoplasm
     Dosage: 1 VIAL 10 ML
     Route: 058

REACTIONS (1)
  - Hypersensitivity [Unknown]
